FAERS Safety Report 8959624 (Version 1)
Quarter: 2012Q4

REPORT INFORMATION
  Report Type: 
  Country: MX (occurrence: MX)
  Receive Date: 20121211
  Receipt Date: 20121211
  Transmission Date: 20130627
  Serious: Yes (Hospitalization)
  Sender: FDA-Public Use
  Company Number: PHHY2012MX113316

PATIENT
  Age: 75 Year
  Sex: Male

DRUGS (1)
  1. EXFORGE [Suspect]
     Indication: HYPERTENSION
     Dosage: 1 DF(160/5 mg), daily
     Route: 048
     Dates: start: 20111116, end: 20121125

REACTIONS (7)
  - Cerebral haemorrhage [Recovered/Resolved with Sequelae]
  - Loss of consciousness [Recovered/Resolved with Sequelae]
  - Dizziness [Recovered/Resolved with Sequelae]
  - Hypokinesia [Unknown]
  - Paralysis [Unknown]
  - Eye movement disorder [Unknown]
  - Venous occlusion [Recovered/Resolved with Sequelae]
